FAERS Safety Report 9940982 (Version 2)
Quarter: 2014Q1

REPORT INFORMATION
  Report Type: Spontaneous
  Country: GR (occurrence: GR)
  Receive Date: 20140303
  Receipt Date: 20140303
  Transmission Date: 20141002
  Serious: Yes (Life-Threatening, Other)
  Sender: FDA-Public Use
  Company Number: ALCN2014GR001293

PATIENT
  Age: 66 Year
  Sex: Male
  Weight: 90 kg

DRUGS (4)
  1. TRAVATAN POLYQUAD [Suspect]
     Indication: INTRAOCULAR PRESSURE INCREASED
     Dosage: 1 GTT, QD
     Route: 047
     Dates: start: 20140208, end: 20140209
  2. TRAVATAN POLYQUAD [Suspect]
     Indication: GLAUCOMA
  3. SIMVASTATIN [Concomitant]
  4. NEVANAC [Concomitant]
     Route: 047

REACTIONS (3)
  - Hypersensitivity [Recovered/Resolved]
  - Face oedema [Recovered/Resolved]
  - Oedema mouth [Recovered/Resolved]
